FAERS Safety Report 6835372-1 (Version None)
Quarter: 2010Q3

REPORT INFORMATION
  Report Type: 
  Country: None (occurrence: None)
  Receive Date: 20100708
  Receipt Date: 20100701
  Transmission Date: 20110219
  Serious: Yes (Death)
  Sender: FDA-Public Use
  Company Number: 2010US002626

PATIENT
  Age: 72 Year
  Sex: Male
  Weight: 83 kg

DRUGS (8)
  1. PROGRAF [Suspect]
     Indication: PROPHYLAXIS AGAINST TRANSPLANT REJECTION
     Dosage: 3 MG, UID/QD, ORAL
     Route: 048
     Dates: start: 20050407
  2. ASPIRIN [Concomitant]
  3. METOPROLOL TARTRATE [Concomitant]
  4. ZANTAC [Concomitant]
  5. ZOCOR [Concomitant]
  6. REGLAN (METOCOLOPRAMIDE) [Concomitant]
  7. LISINOPRIL [Concomitant]
  8. RAPAMUNE [Concomitant]

REACTIONS (2)
  - DIALYSIS [None]
  - RENAL FAILURE [None]
